FAERS Safety Report 6922316-7 (Version None)
Quarter: 2010Q3

REPORT INFORMATION
  Report Type: 
  Country: None (occurrence: None)
  Receive Date: 20100813
  Receipt Date: 20100804
  Transmission Date: 20110219
  Serious: No
  Sender: FDA-Public Use
  Company Number: US-BIOGENIDEC-2010BI026502

PATIENT
  Age: 45 Year
  Sex: Female

DRUGS (5)
  1. AVONEX [Suspect]
     Indication: MULTIPLE SCLEROSIS
     Route: 030
     Dates: start: 20100715, end: 20100715
  2. AVONEX [Suspect]
     Route: 030
     Dates: start: 20100722, end: 20100722
  3. AVONEX [Suspect]
     Route: 030
     Dates: start: 20100729
  4. AVONEX [Suspect]
     Route: 030
     Dates: start: 20100804
  5. LORAZEPAM [Concomitant]
     Indication: DEPRESSION
     Route: 048

REACTIONS (5)
  - ANXIETY [None]
  - CRYING [None]
  - DEPRESSION [None]
  - DIARRHOEA [None]
  - HYPERCHLORHYDRIA [None]
